FAERS Safety Report 9821979 (Version 4)
Quarter: 2014Q1

REPORT INFORMATION
  Report Type: Spontaneous
  Country: JP (occurrence: JP)
  Receive Date: 20140116
  Receipt Date: 20140313
  Transmission Date: 20141002
  Serious: Yes (Hospitalization)
  Sender: FDA-Public Use
  Company Number: JP-JNJFOC-20140105332

PATIENT
  Age: 62 Year
  Sex: Female
  Weight: 43 kg

DRUGS (13)
  1. REMICADE [Suspect]
     Indication: RHEUMATOID ARTHRITIS
     Route: 042
     Dates: start: 2007
  2. REMICADE [Suspect]
     Indication: RHEUMATOID ARTHRITIS
     Route: 042
     Dates: start: 2011, end: 2011
  3. METHOTREXATE [Suspect]
     Indication: RHEUMATOID ARTHRITIS
     Route: 048
     Dates: start: 2005, end: 20120904
  4. METOLATE [Suspect]
     Indication: RHEUMATOID ARTHRITIS
     Route: 048
     Dates: start: 2005
  5. LIVALO [Concomitant]
     Indication: HYPERLIPIDAEMIA
     Route: 048
  6. CALFINA [Concomitant]
     Indication: PROPHYLAXIS
     Route: 048
     Dates: start: 20121020
  7. OLMETEC [Concomitant]
     Indication: HYPERTENSION
     Route: 048
  8. FOLIAMIN [Concomitant]
     Indication: PROPHYLAXIS
     Route: 065
     Dates: start: 20120904
  9. PREDNISOLONE [Concomitant]
     Indication: RHEUMATOID ARTHRITIS
     Route: 048
  10. ACTONEL [Concomitant]
     Indication: PROPHYLAXIS
     Route: 048
  11. ETODOLAC [Concomitant]
     Indication: RHEUMATOID ARTHRITIS
     Route: 048
     Dates: start: 20121020
  12. CYTOTEC [Concomitant]
     Indication: PROPHYLAXIS
     Route: 048
     Dates: start: 20121020
  13. ATELEC [Concomitant]
     Indication: HYPERTENSION
     Route: 065
     Dates: start: 20121020

REACTIONS (2)
  - Lymphoproliferative disorder [Recovering/Resolving]
  - Infusion related reaction [Unknown]
